FAERS Safety Report 8056095-X (Version None)
Quarter: 2012Q1

REPORT INFORMATION
  Report Type: 
  Country: None (occurrence: None)
  Receive Date: 20120119
  Receipt Date: 20120116
  Transmission Date: 20120608
  Serious: Yes (Hospitalization, Other)
  Sender: FDA-Public Use
  Company Number: IT-BRISTOL-MYERS SQUIBB COMPANY-16091399

PATIENT
  Age: 73 Year
  Sex: Male

DRUGS (2)
  1. COUMADIN [Suspect]
     Indication: ATRIAL FIBRILLATION
     Dosage: 1 DF = 1 UNIT
     Dates: start: 20100706, end: 20110728
  2. ACETYLSALICYLIC ACID SRT [Concomitant]
     Route: 048

REACTIONS (3)
  - HAEMARTHROSIS [None]
  - PYOMYOSITIS [None]
  - INTERNATIONAL NORMALISED RATIO INCREASED [None]
